FAERS Safety Report 6647130-1 (Version None)
Quarter: 2010Q1

REPORT INFORMATION
  Report Type: 
  Country: None (occurrence: None)
  Receive Date: 20100323
  Receipt Date: 20100311
  Transmission Date: 20100710
  Serious: Yes (Other)
  Sender: FDA-Public Use
  Company Number: PHHY2009CA03698

PATIENT
  Sex: Female

DRUGS (2)
  1. ACLASTA [Suspect]
     Dosage: UNK
     Dates: start: 20090127
  2. ACLASTA [Suspect]
     Dosage: UNK
     Dates: start: 20100111

REACTIONS (6)
  - ASTHENIA [None]
  - DEAFNESS [None]
  - FATIGUE [None]
  - HYPOACUSIS [None]
  - INJECTION SITE SWELLING [None]
  - PAIN IN JAW [None]
